FAERS Safety Report 9516249 (Version 1)
Quarter: 2013Q3

REPORT INFORMATION
  Report Type: Spontaneous
  Country: US (occurrence: US)
  Receive Date: 20130911
  Receipt Date: 20130911
  Transmission Date: 20140515
  Serious: No
  Sender: FDA-Public Use
  Company Number: US-FOUGERA-2013FO000024

PATIENT
  Age: 87 Year
  Sex: Male

DRUGS (1)
  1. CICLOPIROX [Suspect]
     Indication: TINEA PEDIS
     Route: 061
     Dates: start: 201301

REACTIONS (1)
  - Therapeutic response decreased [Not Recovered/Not Resolved]
